FAERS Safety Report 6975512-7 (Version None)
Quarter: 2010Q3

REPORT INFORMATION
  Report Type: 
  Country: None (occurrence: None)
  Receive Date: 20100910
  Receipt Date: 20100901
  Transmission Date: 20110219
  Serious: Yes (Hospitalization)
  Sender: FDA-Public Use
  Company Number: US-BIOGENIDEC-2010BI028386

PATIENT
  Sex: Female
  Weight: 80 kg

DRUGS (3)
  1. AVONEX [Suspect]
     Indication: MULTIPLE SCLEROSIS
     Route: 030
     Dates: start: 19980401, end: 19980520
  2. AVONEX [Suspect]
     Route: 030
     Dates: start: 20010415, end: 20030801
  3. AVONEX [Suspect]
     Route: 030
     Dates: start: 20030901

REACTIONS (7)
  - ARTHRITIS INFECTIVE [None]
  - DIARRHOEA [None]
  - GASTRIC DISORDER [None]
  - MULTIPLE SCLEROSIS RELAPSE [None]
  - PYREXIA [None]
  - STREPTOCOCCAL INFECTION [None]
  - URINARY TRACT INFECTION [None]
